FAERS Safety Report 11533987 (Version 4)
Quarter: 2018Q2

REPORT INFORMATION
  Report Type: Spontaneous
  Country: US (occurrence: US)
  Receive Date: 20150922
  Receipt Date: 20180424
  Transmission Date: 20180711
  Serious: Yes (Hospitalization, Other)
  Sender: FDA-Public Use
  Company Number: US-AUROBINDO-AUR-APL-2015-08345

PATIENT
  Age: 16 Year
  Sex: Male

DRUGS (2)
  1. LAMOTRIGINE. [Suspect]
     Active Substance: LAMOTRIGINE
     Indication: SEIZURE
     Route: 065
  2. LAMOTRIGINE. [Suspect]
     Active Substance: LAMOTRIGINE
     Indication: SEIZURE

REACTIONS (31)
  - Retinal artery occlusion [Recovered/Resolved]
  - Swelling face [Recovered/Resolved]
  - Rash [Recovered/Resolved]
  - Deafness neurosensory [Not Recovered/Not Resolved]
  - Chorioretinopathy [Recovered/Resolved]
  - Eosinophil count increased [Recovered/Resolved]
  - Confusional state [Recovered/Resolved]
  - Discomfort [Recovered/Resolved]
  - Scleritis [Recovered/Resolved]
  - Vomiting [Recovered/Resolved]
  - Idiosyncratic drug reaction [Recovered/Resolved]
  - Vasogenic cerebral oedema [Recovered/Resolved]
  - Intraocular pressure increased [Recovered/Resolved]
  - Beta 2 microglobulin urine increased [Recovered/Resolved]
  - Headache [Recovered/Resolved]
  - Cogan^s syndrome [Recovered/Resolved with Sequelae]
  - Ocular hypertension [Recovered/Resolved]
  - Dizziness [Recovered/Resolved]
  - Back pain [Recovered/Resolved]
  - Blood creatinine increased [Recovered/Resolved]
  - Vision blurred [Recovered/Resolved]
  - Blindness [Recovered/Resolved]
  - Gastrointestinal disorder [Recovered/Resolved]
  - Cogan^s syndrome [Recovered/Resolved]
  - Weight decreased [Recovered/Resolved]
  - Tubulointerstitial nephritis and uveitis syndrome [Recovered/Resolved]
  - Iridocyclitis [Recovered/Resolved]
  - Eye pain [Recovered/Resolved]
  - Nausea [Recovered/Resolved]
  - Treatment noncompliance [Recovered/Resolved]
  - Photophobia [Recovered/Resolved]
